FAERS Safety Report 14620938 (Version 2)
Quarter: 2018Q1

REPORT INFORMATION
  Report Type: Report from Study
  Country: US (occurrence: US)
  Receive Date: 20180309
  Receipt Date: 20180330
  Transmission Date: 20180509
  Serious: Yes (Hospitalization, Other)
  Sender: FDA-Public Use
  Company Number: US-BRISTOL-MYERS SQUIBB COMPANY-BMS-2018-019618

PATIENT
  Age: 67 Year
  Sex: Male
  Weight: 71.4 kg

DRUGS (6)
  1. CORTEF [Concomitant]
     Active Substance: HYDROCORTISONE
     Indication: ADRENAL INSUFFICIENCY
     Dosage: 1 DF, QD
     Route: 048
     Dates: start: 20180221, end: 20180226
  2. CABIRALIZUMAB [Suspect]
     Active Substance: CABIRALIZUMAB
     Indication: NEOPLASM MALIGNANT
     Dosage: 4 MG/KG, Q2WK 266 MG
     Route: 042
     Dates: start: 20170829
  3. ACETAMINOPHEN W/OXYCODONE [Concomitant]
     Active Substance: ACETAMINOPHEN\OXYCODONE HYDROCHLORIDE
     Indication: PAIN
     Dosage: 1 DF: 5/325 MG , PRN
     Route: 048
     Dates: start: 20170914
  4. NIVOLUMAB [Suspect]
     Active Substance: NIVOLUMAB
     Indication: NEOPLASM MALIGNANT
     Dosage: 3 MG/KG, Q2WK 199 MG
     Route: 042
     Dates: start: 20170829
  5. PANTOPRAZOLE [Concomitant]
     Active Substance: PANTOPRAZOLE
     Indication: PROPHYLAXIS
     Dosage: 20 MG, QD
     Route: 048
     Dates: start: 20180227
  6. MELATONIN [Concomitant]
     Active Substance: MELATONIN
     Indication: INSOMNIA
     Dosage: 6 MG, UNK
     Route: 048
     Dates: start: 20180227

REACTIONS (1)
  - Optic neuritis [Recovered/Resolved with Sequelae]

NARRATIVE: CASE EVENT DATE: 20180227
